FAERS Safety Report 7102905-X (Version None)
Quarter: 2010Q4

REPORT INFORMATION
  Report Type: 
  Country: None (occurrence: None)
  Receive Date: 20101115
  Receipt Date: 20101111
  Transmission Date: 20110411
  Serious: Yes (Death, Hospitalization)
  Sender: FDA-Public Use
  Company Number: BR-ASTRAZENECA-2010SE54007

PATIENT
  Age: 97 Year
  Sex: Female

DRUGS (3)
  1. SEROQUEL [Suspect]
     Indication: DEPRESSION
     Route: 048
     Dates: start: 20060101, end: 20081221
  2. OSCAL D [Concomitant]
     Indication: OSTEOPOROSIS
  3. ASPIRIN PREVENT [Concomitant]

REACTIONS (3)
  - INFECTION [None]
  - INTESTINAL HAEMORRHAGE [None]
  - PNEUMONIA [None]
